FAERS Safety Report 8838161 (Version 3)
Quarter: 2012Q4

REPORT INFORMATION
  Report Type: 
  Country: US (occurrence: US)
  Receive Date: 20121012
  Receipt Date: 20121129
  Transmission Date: 20130627
  Serious: No
  Sender: FDA-Public Use
  Company Number: US-PFIZER INC-2012253729

PATIENT
  Age: 65 Year
  Sex: Female
  Weight: 81.63 kg

DRUGS (10)
  1. EFFEXOR XR [Suspect]
     Indication: STRESS
     Dosage: 150 mg, daily
     Route: 048
  2. EFFEXOR XR [Suspect]
     Indication: DEPRESSION
     Dosage: 150 mg, daily
     Route: 048
  3. EFFEXOR XR [Suspect]
     Dosage: 75 mg, daily
     Route: 048
     Dates: start: 20121003, end: 201210
  4. EFFEXOR XR [Suspect]
     Dosage: 37.5 mg, 1x/day
     Dates: start: 201210, end: 201210
  5. EFFEXOR XR [Suspect]
     Dosage: 75 mg, 1x/day
     Dates: start: 201210, end: 201210
  6. EFFEXOR XR [Suspect]
     Dosage: 150 mg, UNK
     Dates: start: 201210
  7. LISINOPRIL [Concomitant]
     Indication: BLOOD PRESSURE ABNORMAL
     Dosage: 10 mg, daily
  8. METOPROLOL [Concomitant]
     Indication: BLOOD PRESSURE ABNORMAL
     Dosage: UNK
  9. CRESTOR [Concomitant]
     Indication: BLOOD CHOLESTEROL ABNORMAL
     Dosage: 10 mg, daily
  10. GEMFIBROZIL [Concomitant]
     Indication: BLOOD CHOLESTEROL ABNORMAL
     Dosage: 600 mg, 2x/day

REACTIONS (5)
  - Depression [Unknown]
  - Malaise [Unknown]
  - Crying [Unknown]
  - Nausea [Recovered/Resolved]
  - Dizziness [Unknown]
